FAERS Safety Report 8592171-0 (Version None)
Quarter: 2012Q3

REPORT INFORMATION
  Report Type: 
  Country: None (occurrence: None)
  Receive Date: 20120814
  Receipt Date: 20120802
  Transmission Date: 20120928
  Serious: Yes (Other)
  Sender: FDA-Public Use
  Company Number: GR-ELI_LILLY_AND_COMPANY-GR201208000634

PATIENT
  Age: 31 Year
  Sex: Female

DRUGS (4)
  1. FLUOXETINE [Suspect]
     Dosage: 20 MG, QD
     Route: 048
     Dates: start: 20100101
  2. ZYPREXA [Suspect]
     Indication: PARANOIA
     Dosage: 5 MG, QD
     Route: 048
     Dates: start: 20100101
  3. ZYPREXA [Suspect]
     Dosage: 5 MG, QD
     Dates: start: 20120401
  4. FLUOXETINE [Suspect]
     Indication: AFFECTIVE DISORDER
     Dosage: 20 MG, QD
     Route: 048
     Dates: start: 20120401

REACTIONS (3)
  - POLYCYSTIC OVARIES [None]
  - VAGINAL HAEMORRHAGE [None]
  - INTENTIONAL DRUG MISUSE [None]
